FAERS Safety Report 8979294 (Version 1)
Quarter: 2012Q4

REPORT INFORMATION
  Report Type: Report from Study
  Country: NL (occurrence: NL)
  Receive Date: 20121221
  Receipt Date: 20121221
  Transmission Date: 20130627
  Serious: Yes (Hospitalization)
  Sender: FDA-Public Use
  Company Number: NL-ROCHE-779952

PATIENT
  Age: 23 Year
  Sex: Female
  Weight: 85.4 kg

DRUGS (7)
  1. BLINDED TOCILIZUMAB [Suspect]
     Indication: RHEUMATOID ARTHRITIS
     Dosage: LAST DOSE PRIOR TO SAE: 17 MAY 2011
     Route: 042
  2. NAPROXEN [Suspect]
     Indication: ARTHRITIS
     Route: 065
     Dates: start: 201102, end: 20110527
  3. METHOTREXATE [Suspect]
     Indication: RHEUMATOID ARTHRITIS
     Route: 048
     Dates: end: 20110527
  4. PANTOPRAZOLE [Concomitant]
     Route: 065
  5. CYMBALTA [Concomitant]
     Route: 065
     Dates: start: 201103, end: 20110613
  6. LEVOCETIRIZINE [Concomitant]
     Route: 065
  7. DULOXETINE [Concomitant]
     Route: 048
     Dates: start: 201103, end: 20110613

REACTIONS (3)
  - Ileitis [Recovered/Resolved]
  - Anal haemorrhage [None]
  - Diarrhoea [None]
